FAERS Safety Report 5107117-7 (Version None)
Quarter: 2006Q3

REPORT INFORMATION
  Report Type: 
  Country: None (occurrence: None)
  Receive Date: 20060913
  Receipt Date: 20060830
  Transmission Date: 20061208
  Serious: Yes (Disabling)
  Sender: FDA-Public Use
  Company Number: VNL_0193_2006

PATIENT
  Age: 71 Year
  Sex: Female
  Weight: 68.0396 kg

DRUGS (2)
  1. APOKYN [Suspect]
     Indication: PARKINSON'S DISEASE
     Dosage: DF SC
     Route: 058
  2. PARKINSON'S MEDICATIONS [Concomitant]

REACTIONS (3)
  - DEEP BRAIN STIMULATION [None]
  - HAEMORRHAGIC STROKE [None]
  - POST PROCEDURAL HAEMORRHAGE [None]
